FAERS Safety Report 18022208 (Version 7)
Quarter: 2022Q1

REPORT INFORMATION
  Report Type: Report from Study
  Country: US (occurrence: US)
  Receive Date: 20200714
  Receipt Date: 20220209
  Transmission Date: 20220423
  Serious: Yes (Other)
  Sender: FDA-Public Use
  Company Number: US-TAKEDA-2020TUS018732

PATIENT
  Age: 67 Year
  Sex: Female
  Weight: 57 kg

DRUGS (9)
  1. BRIGATINIB [Suspect]
     Active Substance: BRIGATINIB
     Indication: Bone cancer
     Dosage: 180 MILLIGRAM, QD
     Route: 065
     Dates: start: 20200325, end: 20201016
  2. BRIGATINIB [Suspect]
     Active Substance: BRIGATINIB
     Indication: Metastases to central nervous system
     Dosage: 180 MILLIGRAM, QD
     Route: 065
     Dates: start: 20200326
  3. BRIGATINIB [Suspect]
     Active Substance: BRIGATINIB
     Indication: Metastases to bone
     Dosage: 180 MILLIGRAM, QD
     Route: 048
     Dates: start: 20211019
  4. BRIGATINIB [Suspect]
     Active Substance: BRIGATINIB
     Indication: Metastases to lung
  5. BRIGATINIB [Suspect]
     Active Substance: BRIGATINIB
     Indication: Lung neoplasm malignant
  6. EFAVIRENZ [Suspect]
     Active Substance: EFAVIRENZ
     Indication: Product used for unknown indication
     Dosage: UNK
     Route: 065
  7. ALLEGRA [Concomitant]
     Active Substance: FEXOFENADINE HYDROCHLORIDE
     Indication: Hypersensitivity
     Dosage: UNK
     Route: 065
  8. BENADRYL [Concomitant]
     Active Substance: DIPHENHYDRAMINE HYDROCHLORIDE
     Indication: Hypersensitivity
     Dosage: UNK
     Route: 065
  9. KEPPRA [Concomitant]
     Active Substance: LEVETIRACETAM
     Dosage: UNK
     Route: 065
     Dates: start: 202003

REACTIONS (16)
  - Alveolar lung disease [Unknown]
  - Skin burning sensation [Unknown]
  - Skin exfoliation [Unknown]
  - Illness [Unknown]
  - Hypersensitivity [Unknown]
  - Nausea [Unknown]
  - Diarrhoea [Unknown]
  - Rash [Unknown]
  - Cough [Unknown]
  - Vomiting [Not Recovered/Not Resolved]
  - Malaise [Unknown]
  - Photosensitivity reaction [Unknown]
  - Blood pressure increased [Unknown]
  - Blood cholesterol increased [Unknown]
  - Product dose omission issue [Unknown]
  - Off label use [Not Recovered/Not Resolved]

NARRATIVE: CASE EVENT DATE: 20200301
